FAERS Safety Report 11692355 (Version 1)
Quarter: 2015Q4

REPORT INFORMATION
  Report Type: Spontaneous
  Country: US (occurrence: US)
  Receive Date: 20151103
  Receipt Date: 20151103
  Transmission Date: 20160304
  Serious: No
  Sender: FDA-Public Use
  Company Number: US-TEVA-557166USA

PATIENT
  Age: 12 Year
  Sex: Female

DRUGS (1)
  1. DESMOPRESSIN [Suspect]
     Active Substance: DESMOPRESSIN
     Indication: ENURESIS
     Route: 048
     Dates: start: 20150416, end: 20150418

REACTIONS (2)
  - Hypersensitivity [Unknown]
  - Urticaria [Unknown]
